FAERS Safety Report 5682986-0 (Version None)
Quarter: 2008Q1

REPORT INFORMATION
  Report Type: 
  Country: None (occurrence: None)
  Receive Date: 20080327
  Receipt Date: 20080317
  Transmission Date: 20080703
  Serious: Yes (Hospitalization)
  Sender: FDA-Public Use
  Company Number: GR-WYE-H03277508

PATIENT
  Age: 73 Year
  Sex: Female

DRUGS (8)
  1. ANGORON [Suspect]
     Indication: ATRIAL FIBRILLATION
     Dosage: 2 UNIT EVERY 1 DAY
     Route: 048
     Dates: start: 20070101
  2. ANGORON [Suspect]
     Dosage: 1 UNIT EVERY 1 DAY
     Route: 048
     Dates: start: 20080301, end: 20080301
  3. TENORMIN [Concomitant]
     Dosage: UNSPECIFIED
  4. LEXOTANIL [Concomitant]
     Dosage: UNSPECIFIED
  5. VASTAREL [Concomitant]
     Dosage: UNSPECIFIED
  6. LONARID-N [Concomitant]
     Dosage: UNSPECIFIED
  7. AMIODARONE HCL [Suspect]
     Indication: ATRIAL FIBRILLATION
     Dosage: UNSPECIFIED
     Route: 042
     Dates: start: 20080301, end: 20080301
  8. IRBESARTAN [Concomitant]
     Dosage: UNSPECIFIED

REACTIONS (3)
  - DRUG EFFECT DECREASED [None]
  - OVERDOSE [None]
  - THROMBOPHLEBITIS [None]
